FAERS Safety Report 24842886 (Version 2)
Quarter: 2025Q1

REPORT INFORMATION
  Report Type: Report from Study
  Country: RO (occurrence: RO)
  Receive Date: 20250115
  Receipt Date: 20250219
  Transmission Date: 20250408
  Serious: Yes (Death, Hospitalization, Other)
  Sender: ALEXION PHARMACEUTICALS
  Company Number: RO-AstraZeneca-CH-00783601A

PATIENT
  Age: 76 Year

DRUGS (1)
  1. OLAPARIB [Suspect]
     Active Substance: OLAPARIB
     Indication: Prostate cancer
     Dosage: 600 MILLIGRAM, QD

REACTIONS (1)
  - Cardio-respiratory arrest [Fatal]
